FAERS Safety Report 8740391 (Version 2)
Quarter: 2013Q1

REPORT INFORMATION
  Report Type: Spontaneous
  Country: US (occurrence: US)
  Receive Date: 20120823
  Receipt Date: 20130114
  Transmission Date: 20140127
  Serious: No
  Sender: FDA-Public Use
  Company Number: US-009507513-1208USA004730

PATIENT
  Age: 48 None
  Sex: Female
  Weight: 72.11 kg

DRUGS (1)
  1. NUVARING [Suspect]
     Indication: CONTRACEPTION
     Dosage: 0.12/0.015MG, PER 24 HOURS
     Route: 067
     Dates: start: 20120808

REACTIONS (2)
  - Device expulsion [Unknown]
  - Device breakage [Unknown]
